FAERS Safety Report 9628010 (Version 2)
Quarter: 2014Q2

REPORT INFORMATION
  Report Type: Spontaneous
  Country: IT (occurrence: IT)
  Receive Date: 20131016
  Receipt Date: 20140415
  Transmission Date: 20141212
  Serious: Yes (Hospitalization, Other)
  Sender: FDA-Public Use
  Company Number: IT-ACTAVIS-2013-18626

PATIENT
  Age: 26 Year
  Sex: Female

DRUGS (3)
  1. QUETIAPINE FUMARATE (UNKNOWN) [Suspect]
     Indication: INTENTIONAL SELF-INJURY
     Dosage: 1700 MG, SINGLE
     Route: 048
     Dates: start: 20130816, end: 20130816
  2. VALIUM                             /00017001/ [Concomitant]
     Indication: PRODUCT USED FOR UNKNOWN INDICATION
     Dosage: UNK,UNK
     Route: 065
  3. ARIPIPRAZOLE [Concomitant]
     Indication: DEPRESSION
     Dosage: UNK, UNK
     Route: 065

REACTIONS (4)
  - Bradyphrenia [Recovering/Resolving]
  - Miosis [Recovering/Resolving]
  - Drug abuse [Recovering/Resolving]
  - Hypokinesia [Recovering/Resolving]
